FAERS Safety Report 12680384 (Version 1)
Quarter: 2016Q3

REPORT INFORMATION
  Report Type: Spontaneous
  Country: US (occurrence: None)
  Receive Date: 20160823
  Receipt Date: 20160823
  Transmission Date: 20161109
  Serious: Yes (Hospitalization)
  Sender: FDA-Public Use
  Company Number: None

PATIENT
  Age: 67 Year
  Sex: Male
  Weight: 77.5 kg

DRUGS (1)
  1. LISINOPRIL. [Suspect]
     Active Substance: LISINOPRIL
     Indication: HYPERTENSION
     Route: 048
     Dates: start: 20151013, end: 20160628

REACTIONS (4)
  - Blood pressure systolic increased [None]
  - Therapy cessation [None]
  - Angioedema [None]
  - Anaphylactic reaction [None]

NARRATIVE: CASE EVENT DATE: 20150627
